FAERS Safety Report 15643556 (Version 1)
Quarter: 2018Q4

REPORT INFORMATION
  Report Type: Spontaneous
  Country: US (occurrence: US)
  Receive Date: 20181121
  Receipt Date: 20181121
  Transmission Date: 20190205
  Serious: Yes (Life-Threatening, Hospitalization, Other)
  Sender: FDA-Public Use
  Company Number: US-ALVOGEN-2018-ALVOGEN-097774

PATIENT
  Age: 49 Year
  Sex: Male

DRUGS (7)
  1. HALOPERIDOL. [Suspect]
     Active Substance: HALOPERIDOL
     Indication: MENTAL DISORDER
  2. GABAPENTIN. [Suspect]
     Active Substance: GABAPENTIN
     Indication: MENTAL DISORDER
  3. BUPIVACAINE. [Suspect]
     Active Substance: BUPIVACAINE
     Indication: SPINAL ANAESTHESIA
  4. FLUOXETINE [Suspect]
     Active Substance: FLUOXETINE HYDROCHLORIDE
     Indication: MENTAL DISORDER
  5. TRAZODONE [Suspect]
     Active Substance: TRAZODONE HYDROCHLORIDE
     Indication: MENTAL DISORDER
  6. BUPROPION. [Suspect]
     Active Substance: BUPROPION
     Indication: PRODUCT USED FOR UNKNOWN INDICATION
  7. LITHIUM. [Suspect]
     Active Substance: LITHIUM
     Indication: MENTAL DISORDER

REACTIONS (5)
  - Myoclonus [Recovering/Resolving]
  - Serotonin syndrome [Recovering/Resolving]
  - Autonomic nervous system imbalance [Recovering/Resolving]
  - Mental status changes [Recovering/Resolving]
  - Diarrhoea [Recovering/Resolving]
